FAERS Safety Report 7717230-3 (Version None)
Quarter: 2011Q3

REPORT INFORMATION
  Report Type: 
  Country: None (occurrence: None)
  Receive Date: 20110826
  Receipt Date: 20110826
  Transmission Date: 20111222
  Serious: No
  Sender: FDA-Public Use
  Company Number: None

PATIENT
  Age: 63 Year
  Sex: Male
  Weight: 76.4 kg

DRUGS (2)
  1. AMPHOTERICIN B [Suspect]
     Indication: CRYPTOCOCCOSIS
     Dosage: 240 MG
     Dates: start: 20110818
  2. AMPHOTERICIN B [Suspect]
     Indication: FUNGAL PERITONITIS
     Dosage: 240 MG
     Dates: start: 20110818

REACTIONS (2)
  - INFUSION RELATED REACTION [None]
  - BACK PAIN [None]
